FAERS Safety Report 4720356-X (Version None)
Quarter: 2005Q3

REPORT INFORMATION
  Report Type: 
  Country: None (occurrence: None)
  Receive Date: 20050721
  Receipt Date: 20050719
  Transmission Date: 20060218
  Serious: Yes (Death)
  Sender: FDA-Public Use
  Company Number: FR-BRACCO-BRO-008932

PATIENT
  Age: 76 Year
  Sex: Male

DRUGS (1)
  1. IOPAMIDOL [Suspect]
     Route: 042
     Dates: start: 20050702, end: 20050702

REACTIONS (1)
  - HYPERSENSITIVITY [None]
